FAERS Safety Report 9194299 (Version 2)
Quarter: 2013Q2

REPORT INFORMATION
  Report Type: Spontaneous
  Country: DE (occurrence: DE)
  Receive Date: 20130327
  Receipt Date: 20130611
  Transmission Date: 20140414
  Serious: Yes (Other)
  Sender: FDA-Public Use
  Company Number: DE-UCBSA-081534

PATIENT
  Age: 13 Year
  Sex: Male
  Weight: 56 kg

DRUGS (3)
  1. EQUASYM RETARD [Suspect]
     Indication: ATTENTION DEFICIT/HYPERACTIVITY DISORDER
     Dosage: RETARD
     Route: 048
     Dates: start: 20110704, end: 20120726
  2. FERRITIN [Concomitant]
  3. METHYLPHENIDATE HEXAL [Concomitant]
     Indication: ATTENTION DEFICIT/HYPERACTIVITY DISORDER
     Dosage: 10 MG
     Dates: start: 20110622, end: 20120726

REACTIONS (3)
  - Loss of consciousness [Unknown]
  - Ventricular extrasystoles [Not Recovered/Not Resolved]
  - Tachycardia [Unknown]
